FAERS Safety Report 8962741 (Version 1)
Quarter: 2012Q4

REPORT INFORMATION
  Report Type: 
  Country: US (occurrence: US)
  Receive Date: 20121214
  Receipt Date: 20121214
  Transmission Date: 20130627
  Serious: Yes (Other)
  Sender: FDA-Public Use
  Company Number: US-ASTELLAS-2012US012221

PATIENT
  Sex: Female
  Weight: 91 kg

DRUGS (1)
  1. MYRBETRIQ [Suspect]
     Indication: PRODUCT USED FOR UNKNOWN INDICATION
     Dosage: 25 mg, UID/QD
     Route: 048

REACTIONS (3)
  - Bradykinesia [Unknown]
  - Abnormal behaviour [Unknown]
  - Speech disorder [Unknown]
